FAERS Safety Report 5542816-4 (Version None)
Quarter: 2007Q4

REPORT INFORMATION
  Report Type: 
  Country: None (occurrence: None)
  Receive Date: 20071210
  Receipt Date: 20071128
  Transmission Date: 20080405
  Serious: Yes (Disabling)
  Sender: FDA-Public Use
  Company Number: FR-PFIZER INC-2007094342

PATIENT
  Sex: Male
  Weight: 86 kg

DRUGS (1)
  1. CHAMPIX [Suspect]
     Indication: SMOKING CESSATION THERAPY
     Route: 048
     Dates: start: 20070729, end: 20070825

REACTIONS (4)
  - ANOSMIA [None]
  - DYSGEUSIA [None]
  - HYPOGEUSIA [None]
  - PAROSMIA [None]
